FAERS Safety Report 24714178 (Version 1)
Quarter: 2024Q4

REPORT INFORMATION
  Report Type: Spontaneous
  Country: US (occurrence: US)
  Receive Date: 20241209
  Receipt Date: 20241209
  Transmission Date: 20250114
  Serious: No
  Sender: REGENERON
  Company Number: US-REGENERON PHARMACEUTICALS, INC.-2024-149568

PATIENT

DRUGS (2)
  1. EYLEA [Suspect]
     Active Substance: AFLIBERCEPT
     Indication: Product used for unknown indication
     Dosage: 2 MG, EVERY 2-3 MONTHS, FORMULATION: SINGLE DOSE PFS (GERRESHEIMER), STRENGTH: 2MG/0.05ML
     Dates: start: 202305
  2. EYLEA [Suspect]
     Active Substance: AFLIBERCEPT
     Dosage: 2 MG, EVERY 2-3 MONTHS, FORMULATION: SINGLE DOSE PFS (GERRESHEIMER), STRENGTH: 2MG/0.05ML
     Dates: start: 2024

REACTIONS (1)
  - Intentional dose omission [Recovered/Resolved]

NARRATIVE: CASE EVENT DATE: 20240723
